FAERS Safety Report 9204081 (Version 1)
Quarter: 2013Q1

REPORT INFORMATION
  Report Type: Spontaneous
  Country: US (occurrence: None)
  Receive Date: 20120709
  Receipt Date: 20120709
  Transmission Date: 20140127
  Serious: Yes (Hospitalization)
  Sender: FDA-Public Use
  Company Number: PHEH2011US07420

PATIENT
  Age: 65 Year
  Sex: Female
  Weight: 65 kg

DRUGS (6)
  1. GLEEVEC [Suspect]
     Indication: GASTROINTESTINAL STROMAL CANCER
     Route: 048
     Dates: start: 20110831, end: 20111027
  2. GLEEVEC [Suspect]
     Indication: GASTRIC CANCER
     Route: 048
     Dates: start: 20110831, end: 20111027
  3. VITAMIN D (ERGOCALCIFEROL) [Concomitant]
  4. LISINOPRIL (LISINOPRIL) [Concomitant]
  5. PROTONIX (PANTOPRAZOLE) [Concomitant]
  6. AMLODIPINE (AMLODIPINE) [Concomitant]

REACTIONS (5)
  - Nausea [None]
  - Palpitations [None]
  - Vomiting [None]
  - Weight decreased [None]
  - Pruritus [None]
